FAERS Safety Report 21888576 (Version 2)
Quarter: 2023Q1

REPORT INFORMATION
  Report Type: Spontaneous
  Country: US (occurrence: US)
  Receive Date: 20230120
  Receipt Date: 20230124
  Transmission Date: 20230418
  Serious: Yes (Other)
  Sender: FDA-Public Use
  Company Number: US-SANOFI-01451545

PATIENT
  Sex: Male

DRUGS (1)
  1. DUPIXENT [Suspect]
     Active Substance: DUPILUMAB
     Indication: Asthma
     Dosage: 300 MG
     Route: 065
     Dates: start: 202301

REACTIONS (3)
  - Seizure like phenomena [Unknown]
  - Injection site swelling [Unknown]
  - Asthma [Unknown]

NARRATIVE: CASE EVENT DATE: 20230101
